FAERS Safety Report 8115380 (Version 5)
Quarter: 2013Q4

REPORT INFORMATION
  Report Type: Spontaneous
  Country: US (occurrence: US)
  Receive Date: 20110831
  Receipt Date: 20131028
  Transmission Date: 20140711
  Serious: Yes (Hospitalization, Other)
  Sender: FDA-Public Use
  Company Number: US-BAYER-2011-078567

PATIENT
  Age: 19 Year
  Sex: Female
  Weight: 58.96 kg

DRUGS (6)
  1. BEYAZ [Suspect]
     Indication: ORAL CONTRACEPTION
     Dosage: UNK, QD
     Route: 048
     Dates: start: 20110515, end: 20110813
  2. BEYAZ [Suspect]
     Indication: ACNE
  3. BEYAZ [Suspect]
     Indication: MENSTRUAL CYCLE MANAGEMENT
  4. YAZ [Suspect]
     Indication: ACNE
     Dosage: UNK
  5. DIFFERIN [Concomitant]
     Indication: ACNE
     Dosage: 0.3 %, AT BEDTIME
  6. VICODIN [Concomitant]
     Dosage: UNK

REACTIONS (5)
  - Pulmonary embolism [None]
  - Pulmonary embolism [None]
  - Dyspnoea [None]
  - Chest pain [None]
  - Deep vein thrombosis [None]
